FAERS Safety Report 8548007-7 (Version None)
Quarter: 2012Q3

REPORT INFORMATION
  Report Type: 
  Country: None (occurrence: None)
  Receive Date: 20120729
  Receipt Date: 20120717
  Transmission Date: 20120928
  Serious: Yes (Other)
  Sender: FDA-Public Use
  Company Number: JP-BRISTOL-MYERS SQUIBB COMPANY-16783953

PATIENT
  Age: 59 Year
  Sex: Female

DRUGS (4)
  1. TAXOL [Suspect]
     Indication: UTERINE CANCER
     Route: 042
  2. WARFARIN POTASSIUM [Interacting]
     Indication: ANTICOAGULANT THERAPY
  3. HEPARIN SODIUM [Interacting]
     Indication: ANTICOAGULANT THERAPY
  4. CARBOPLATIN [Interacting]
     Indication: UTERINE CANCER

REACTIONS (4)
  - DEEP VEIN THROMBOSIS [None]
  - PULMONARY EMBOLISM [None]
  - INTERNATIONAL NORMALISED RATIO INCREASED [None]
  - DRUG INTERACTION [None]
